FAERS Safety Report 6295542-0 (Version None)
Quarter: 2009Q3

REPORT INFORMATION
  Report Type: 
  Country: None (occurrence: None)
  Receive Date: 20090731
  Receipt Date: 20090724
  Transmission Date: 20100115
  Serious: Yes (Hospitalization, Other)
  Sender: FDA-Public Use
  Company Number: 09US002756

PATIENT
  Sex: Male

DRUGS (1)
  1. DOXYLAMINE SUCCINATE [Suspect]
     Indication: DRUG USE FOR UNKNOWN INDICATION
     Dosage: 175 MG (7 TABLETS) AT ONCE, ORAL
     Route: 048
     Dates: start: 20090723, end: 20090723

REACTIONS (1)
  - INTENTIONAL OVERDOSE [None]
